FAERS Safety Report 6016726-2 (Version None)
Quarter: 2008Q4

REPORT INFORMATION
  Report Type: 
  Country: None (occurrence: None)
  Receive Date: 20081222
  Receipt Date: 20081208
  Transmission Date: 20090506
  Serious: No
  Sender: FDA-Public Use
  Company Number: US-B.I. PHARMACEUTICALS,INC./RIDGEFIELD-2008-BP-18448BP

PATIENT
  Sex: Male

DRUGS (1)
  1. ZANTAC [Suspect]
     Indication: DYSPEPSIA
     Dosage: 300MG
     Route: 048
     Dates: start: 20081204, end: 20081207

REACTIONS (1)
  - DRUG INEFFECTIVE [None]
